FAERS Safety Report 10268712 (Version 2)
Quarter: 2014Q2

REPORT INFORMATION
  Report Type: Spontaneous
  Country: DE (occurrence: DE)
  Receive Date: 20140630
  Receipt Date: 20140630
  Transmission Date: 20141212
  Serious: Yes (Life-Threatening, Hospitalization)
  Sender: FDA-Public Use
  Company Number: DE-CELGENEUS-062-POMAL-14043972

PATIENT
  Age: 63 Year
  Sex: Male
  Weight: 81 kg

DRUGS (11)
  1. IMNOVID [Suspect]
     Indication: PLASMA CELL MYELOMA
     Dosage: 4 MILLIGRAM
     Route: 048
     Dates: start: 201401, end: 20140331
  2. DEXAMETHASONE [Concomitant]
     Indication: PLASMA CELL MYELOMA
     Route: 065
     Dates: start: 201401, end: 201403
  3. DEXAMETHASONE [Concomitant]
     Route: 065
     Dates: start: 2004, end: 2004
  4. DEXAMETHASONE [Concomitant]
     Route: 065
     Dates: start: 2011, end: 2011
  5. DEXAMETHASONE [Concomitant]
     Route: 065
     Dates: start: 2012, end: 2012
  6. ZYTIGA [Concomitant]
     Indication: PROSTATE CANCER
     Dosage: 1000 MILLIGRAM
     Route: 065
  7. PREDNISONE [Concomitant]
     Indication: PLASMA CELL MYELOMA
     Dosage: 5 MILLIGRAM
     Route: 065
  8. TARGIN [Concomitant]
     Indication: PAIN
     Route: 065
  9. PARACETAMOL [Concomitant]
     Indication: PAIN
     Route: 065
  10. AMLODIPINE [Concomitant]
     Indication: HYPERTONIA
     Route: 065
  11. OMEPRAZOLE [Concomitant]
     Indication: HYPERTONIA
     Dosage: 40 MILLIGRAM
     Route: 065

REACTIONS (1)
  - Respiratory failure [Recovered/Resolved]
